FAERS Safety Report 13848861 (Version 1)
Quarter: 2017Q3

REPORT INFORMATION
  Report Type: Spontaneous
  Country: BR (occurrence: BR)
  Receive Date: 20170809
  Receipt Date: 20170809
  Transmission Date: 20171127
  Serious: Yes (Hospitalization, Other)
  Sender: FDA-Public Use
  Company Number: BR-009507513-1708BRA003728

PATIENT
  Age: 31 Year
  Sex: Female
  Weight: 65 kg

DRUGS (1)
  1. NUVARING [Suspect]
     Active Substance: ETHINYL ESTRADIOL\ETONOGESTREL
     Indication: CONTRACEPTION
     Dosage: 1 DF, WEEKS USE, 1 WEEK PAUSE
     Route: 067
     Dates: start: 2012

REACTIONS (7)
  - Road traffic accident [Recovered/Resolved]
  - Withdrawal bleed [Not Recovered/Not Resolved]
  - Metrorrhagia [Recovered/Resolved]
  - Facial bones fracture [Recovered/Resolved]
  - Inappropriate schedule of drug administration [Unknown]
  - Discomfort [Not Recovered/Not Resolved]
  - Inappropriate schedule of drug administration [Unknown]

NARRATIVE: CASE EVENT DATE: 2012
